FAERS Safety Report 10260363 (Version 1)
Quarter: 2014Q2

REPORT INFORMATION
  Report Type: Report from Study
  Country: US (occurrence: US)
  Receive Date: 20140625
  Receipt Date: 20140625
  Transmission Date: 20141212
  Serious: No
  Sender: FDA-Public Use
  Company Number: US-SA-2014SA077045

PATIENT
  Age: 45 Year
  Sex: Female

DRUGS (6)
  1. AUBAGIO [Suspect]
     Indication: MULTIPLE SCLEROSIS
     Route: 048
     Dates: start: 20140410
  2. VITAMIN D [Concomitant]
  3. CRANBERRY EXTRACT [Concomitant]
  4. CELEXA [Concomitant]
     Dosage: STRENGTH 20 MG
  5. AMANTADINE [Concomitant]
     Dosage: STRENGTH 100 MG
  6. FISH OIL [Concomitant]

REACTIONS (4)
  - Blister [Recovered/Resolved]
  - Depression [Unknown]
  - Hypoaesthesia [Unknown]
  - Multiple sclerosis relapse [Unknown]
